FAERS Safety Report 7005962-4 (Version None)
Quarter: 2010Q3

REPORT INFORMATION
  Report Type: 
  Country: None (occurrence: None)
  Receive Date: 20100921
  Receipt Date: 20100910
  Transmission Date: 20110219
  Serious: Yes (Hospitalization, Disabling, Other)
  Sender: FDA-Public Use
  Company Number: PHHY2010US60090

PATIENT
  Sex: Male

DRUGS (14)
  1. TASIGNA [Suspect]
     Dosage: 400 MG, BID
     Dates: start: 20100621, end: 20100901
  2. ALLOPURINOL [Concomitant]
  3. ASPIRIN [Concomitant]
  4. COZAAR [Concomitant]
  5. FUROSEMIDE [Concomitant]
  6. LISINOPRIL [Concomitant]
  7. SIMVASTATIN [Concomitant]
  8. PROAIR HFA [Concomitant]
  9. COMPAZINE [Concomitant]
  10. JANUVIA [Concomitant]
  11. LANTUS [Concomitant]
  12. DILANTIN [Concomitant]
  13. TOPROL-XL [Concomitant]
  14. ZOLOFT [Concomitant]

REACTIONS (4)
  - ELECTROCARDIOGRAM QT PROLONGED [None]
  - NERVOUS SYSTEM DISORDER [None]
  - RENAL IMPAIRMENT [None]
  - SYNCOPE [None]
